FAERS Safety Report 4719955-0 (Version None)
Quarter: 2005Q3

REPORT INFORMATION
  Report Type: 
  Country: None (occurrence: None)
  Receive Date: 20050721
  Receipt Date: 20050211
  Transmission Date: 20060218
  Serious: No
  Sender: FDA-Public Use
  Company Number: US-GLAXOSMITHKLINE-A0545170A

PATIENT
  Age: 71 Year
  Sex: Female

DRUGS (6)
  1. AVANDIA [Suspect]
     Dosage: 4MG PER DAY
     Route: 048
     Dates: start: 20041101, end: 20050124
  2. GEODON [Concomitant]
  3. ATENOLOL [Concomitant]
  4. TRAZODONE HCL [Concomitant]
  5. LIPITOR [Concomitant]
  6. TRIAMTERENE [Concomitant]

REACTIONS (4)
  - INCREASED APPETITE [None]
  - PAIN IN EXTREMITY [None]
  - RASH [None]
  - SWELLING [None]
